FAERS Safety Report 25567037 (Version 1)
Quarter: 2025Q3

REPORT INFORMATION
  Report Type: Spontaneous
  Country: US (occurrence: US)
  Receive Date: 20250716
  Receipt Date: 20250716
  Transmission Date: 20251020
  Serious: No
  Sender: TAKEDA
  Company Number: US-TAKEDA-2025TUS063788

PATIENT
  Sex: Male

DRUGS (4)
  1. GATTEX [Suspect]
     Active Substance: TEDUGLUTIDE\WATER
     Indication: Crohn^s disease
     Dosage: 3.13 MILLIGRAM, QD
     Dates: end: 20250627
  2. GATTEX [Suspect]
     Active Substance: TEDUGLUTIDE\WATER
     Indication: Pouchitis
  3. GATTEX [Suspect]
     Active Substance: TEDUGLUTIDE\WATER
  4. GATTEX [Suspect]
     Active Substance: TEDUGLUTIDE\WATER

REACTIONS (1)
  - Off label use [Unknown]
